FAERS Safety Report 6387080-1 (Version None)
Quarter: 2009Q4

REPORT INFORMATION
  Report Type: 
  Country: None (occurrence: None)
  Receive Date: 20091002
  Receipt Date: 20090922
  Transmission Date: 20100525
  Serious: Yes (Other)
  Sender: FDA-Public Use
  Company Number: BR-AVENTIS-200920844GDDC

PATIENT
  Age: 0 Year
  Sex: Male
  Weight: 3.84 kg

DRUGS (3)
  1. LANTUS [Suspect]
     Indication: TYPE 1 DIABETES MELLITUS
     Route: 064
     Dates: start: 20080101, end: 20090101
  2. OPTIPEN (INSULIN PUMP) [Suspect]
     Dates: start: 20080101, end: 20090101
  3. NOVORAPID [Concomitant]
     Indication: TYPE 1 DIABETES MELLITUS
     Dosage: DOSE: ACCORDING TO MOTHER'S GLYCEMIA LEVEL
     Route: 064

REACTIONS (2)
  - DRUG EXPOSURE DURING PREGNANCY [None]
  - HYPOGLYCAEMIA NEONATAL [None]
